FAERS Safety Report 7171418-1 (Version None)
Quarter: 2010Q4

REPORT INFORMATION
  Report Type: 
  Country: None (occurrence: None)
  Receive Date: 20101123
  Receipt Date: 20100928
  Transmission Date: 20110411
  Serious: No
  Sender: FDA-Public Use
  Company Number: 019465

PATIENT
  Sex: Female
  Weight: 37 kg

DRUGS (8)
  1. CIMZIA [Suspect]
     Indication: CROHN'S DISEASE
     Dosage: (TWO SHOTS SUBCUTANEOUS)
     Route: 058
     Dates: start: 20070101
  2. COUMADIN [Concomitant]
  3. TRAMADOL HCL [Concomitant]
  4. DILAUDID [Concomitant]
  5. QVAR 40 [Concomitant]
  6. POTASSIUM CHLORIDE [Concomitant]
  7. MAGNESIUM [Concomitant]
  8. MULTIPLE VITAMINS [Concomitant]

REACTIONS (2)
  - INJECTION SITE URTICARIA [None]
  - URTICARIA [None]
